FAERS Safety Report 9478649 (Version 1)
Quarter: 2013Q3

REPORT INFORMATION
  Report Type: Spontaneous
  Country: US (occurrence: US)
  Receive Date: 20130827
  Receipt Date: 20130827
  Transmission Date: 20140515
  Serious: Yes (Other)
  Sender: FDA-Public Use
  Company Number: US-ABBOTT-13P-163-1135768-00

PATIENT
  Age: 12 Year
  Sex: Female

DRUGS (1)
  1. SEVOFLURANE [Suspect]
     Indication: PRODUCT USED FOR UNKNOWN INDICATION

REACTIONS (5)
  - Dystonia [Unknown]
  - Mitochondrial encephalomyopathy [Unknown]
  - Lactic acidosis [Unknown]
  - Coma [Unknown]
  - Dysplasia [Unknown]
